FAERS Safety Report 7708787-7 (Version None)
Quarter: 2011Q3

REPORT INFORMATION
  Report Type: 
  Country: None (occurrence: None)
  Receive Date: 20110825
  Receipt Date: 20110818
  Transmission Date: 20111222
  Serious: Yes (Other)
  Sender: FDA-Public Use
  Company Number: JP-BRISTOL-MYERS SQUIBB COMPANY-15947955

PATIENT

DRUGS (1)
  1. KENACORT [Suspect]
     Dosage: 40-50 MG TOTAL

REACTIONS (1)
  - OESOPHAGEAL PERFORATION [None]
